FAERS Safety Report 22646153 (Version 1)
Quarter: 2023Q2

REPORT INFORMATION
  Report Type: Spontaneous
  Country: US (occurrence: None)
  Receive Date: 20230626
  Receipt Date: 20230626
  Transmission Date: 20230722
  Serious: Yes (Hospitalization)
  Sender: FDA-Public Use
  Company Number: None

PATIENT
  Age: 39 Year
  Sex: Female
  Weight: 57.9 kg

DRUGS (8)
  1. METHYLPREDNISOLONE [Suspect]
     Active Substance: METHYLPREDNISOLONE
     Indication: Lupus nephritis
     Dosage: FREQUENCY : DAILY;?
     Route: 042
     Dates: start: 20230429
  2. PREDNISONE [Suspect]
  3. CEFTRIAXONE [Concomitant]
  4. VORICONAZOLE [Concomitant]
     Active Substance: VORICONAZOLE
  5. CEFAZOLIN [Concomitant]
     Active Substance: CEFAZOLIN
  6. MICAFUNGIN [Concomitant]
  7. ENOXAPARIN [Concomitant]
  8. HEPARIN [Concomitant]

REACTIONS (4)
  - Liver function test increased [None]
  - Klebsiella test positive [None]
  - Cholestasis [None]
  - Abscess neck [None]

NARRATIVE: CASE EVENT DATE: 20230429
